FAERS Safety Report 6304109-7 (Version None)
Quarter: 2009Q3

REPORT INFORMATION
  Report Type: 
  Country: None (occurrence: None)
  Receive Date: 20090806
  Receipt Date: 20090723
  Transmission Date: 20100115
  Serious: Yes (Death)
  Sender: FDA-Public Use
  Company Number: 2009AL000178

PATIENT
  Age: 83 Year
  Sex: Female

DRUGS (17)
  1. DIGOXIN [Suspect]
     Dosage: 0.125MG, DAILY, PO
     Route: 048
     Dates: start: 20080101, end: 20081231
  2. AMITRIPTYLINE [Concomitant]
  3. POTASSIUM CHLORIDE [Concomitant]
  4. GLYBURIDE [Concomitant]
  5. ASPIRIN [Concomitant]
  6. HYDROCODONE [Concomitant]
  7. CHLORODIAZEPOXIDE [Concomitant]
  8. BUMETANIDE [Concomitant]
  9. VERAPAMIL [Concomitant]
  10. LISINOPRIL [Concomitant]
  11. METFORMIN [Concomitant]
  12. CLONIDINE [Concomitant]
  13. KETOCONAZOLE [Concomitant]
  14. FLUOCINONIDE [Concomitant]
  15. OMEPRAZOLE [Concomitant]
  16. LIBRIUM [Concomitant]
  17. VYCODIN [Concomitant]

REACTIONS (14)
  - ABDOMINAL PAIN [None]
  - CARDIAC ARREST [None]
  - ECONOMIC PROBLEM [None]
  - EMOTIONAL DISTRESS [None]
  - FAMILY STRESS [None]
  - ILL-DEFINED DISORDER [None]
  - IMPAIRED WORK ABILITY [None]
  - MULTIPLE INJURIES [None]
  - MYOCARDIAL INFARCTION [None]
  - NAUSEA [None]
  - PAIN [None]
  - SOCIAL PROBLEM [None]
  - URINARY TRACT INFECTION [None]
  - VOMITING [None]
